FAERS Safety Report 25441338 (Version 2)
Quarter: 2025Q2

REPORT INFORMATION
  Report Type: Spontaneous
  Country: JP (occurrence: JP)
  Receive Date: 20250616
  Receipt Date: 20250625
  Transmission Date: 20250716
  Serious: Yes (Death, Hospitalization)
  Sender: ELI LILLY AND COMPANY
  Company Number: JP-ELI_LILLY_AND_COMPANY-JP202506010418

PATIENT
  Age: 76 Year
  Sex: Male

DRUGS (3)
  1. OLUMIANT [Suspect]
     Active Substance: BARICITINIB
     Indication: Rheumatoid arthritis
     Route: 048
     Dates: start: 202403, end: 202408
  2. METHOTREXATE [Concomitant]
     Active Substance: METHOTREXATE
     Indication: Rheumatoid arthritis
  3. ACTEMRA [Concomitant]
     Active Substance: TOCILIZUMAB
     Indication: Rheumatoid arthritis

REACTIONS (2)
  - Respiratory failure [Fatal]
  - COVID-19 pneumonia [Fatal]
